FAERS Safety Report 11314549 (Version 4)
Quarter: 2015Q4

REPORT INFORMATION
  Report Type: Spontaneous
  Country: US (occurrence: US)
  Receive Date: 20150727
  Receipt Date: 20151002
  Transmission Date: 20160304
  Serious: Yes (Hospitalization, Disabling, Other)
  Sender: FDA-Public Use
  Company Number: US-009507513-1204USA00466

PATIENT
  Sex: Female

DRUGS (11)
  1. BONIVA [Suspect]
     Active Substance: IBANDRONATE SODIUM
     Dosage: 1 MG/ML SOLUTION, 3 MG IV QUARTERLY
     Route: 042
     Dates: start: 2005, end: 2009
  2. IBANDRONATE SODIUM. [Suspect]
     Active Substance: IBANDRONATE SODIUM
     Dosage: 1 MG/ML SOLUTION 3 MG IV QUARTERLY
     Route: 042
     Dates: start: 2005, end: 2009
  3. IBANDRONATE SODIUM. [Suspect]
     Active Substance: IBANDRONATE SODIUM
     Indication: OSTEOPOROSIS
     Dosage: 150 MG, QM
     Route: 048
     Dates: start: 2005, end: 2009
  4. CALCIUM (UNSPECIFIED) [Concomitant]
     Active Substance: CALCIUM
     Dosage: 630 MG, BID
     Route: 048
     Dates: start: 1980
  5. FOSAMAX [Suspect]
     Active Substance: ALENDRONATE SODIUM
     Dosage: 40 MG DAILY OR WEEKLY
     Route: 048
     Dates: start: 199908, end: 2005
  6. FOSAMAX [Suspect]
     Active Substance: ALENDRONATE SODIUM
     Indication: OSTEOPOROSIS
     Dosage: 10 MG, QD
     Route: 048
     Dates: start: 199908, end: 2005
  7. FOSAMAX [Suspect]
     Active Substance: ALENDRONATE SODIUM
     Dosage: 70 MG, QW
     Route: 048
     Dates: start: 199908, end: 2005
  8. ZOLEDRONIC ACID [Suspect]
     Active Substance: ZOLEDRONIC ACID
     Indication: OSTEOPOROSIS
     Dosage: 100 ML, ONCE A YEAR
     Route: 042
     Dates: start: 2009, end: 2011
  9. RECLAST [Suspect]
     Active Substance: ZOLEDRONIC ACID
     Indication: OSTEOPOROSIS
     Dosage: 100 ML, ONCE A YEAR
     Route: 042
     Dates: start: 2009, end: 2011
  10. BONIVA [Suspect]
     Active Substance: IBANDRONATE SODIUM
     Indication: OSTEOPOROSIS
     Dosage: 150 MG, QM
     Route: 048
     Dates: start: 2005, end: 2009
  11. VITAMIN D [Concomitant]
     Active Substance: CHOLECALCIFEROL
     Dosage: 500 IU, BID
     Route: 048
     Dates: start: 1980

REACTIONS (22)
  - Fall [Unknown]
  - Osteoporosis [Not Recovered/Not Resolved]
  - Fall [Unknown]
  - Bone disorder [Not Recovered/Not Resolved]
  - Fibromyalgia [Unknown]
  - Femur fracture [Recovered/Resolved with Sequelae]
  - Ulna fracture [Recovering/Resolving]
  - Osteoarthritis [Unknown]
  - Nephrolithiasis [Unknown]
  - Foot fracture [Unknown]
  - Contusion [Recovering/Resolving]
  - Low turnover osteopathy [Not Recovered/Not Resolved]
  - Rheumatoid arthritis [Unknown]
  - Cholecystectomy [Unknown]
  - Weight increased [Unknown]
  - Radius fracture [Unknown]
  - Fall [Unknown]
  - Periostitis [Unknown]
  - Restless legs syndrome [Unknown]
  - Rib fracture [Unknown]
  - Radius fracture [Recovered/Resolved]
  - Gastrooesophageal reflux disease [Unknown]

NARRATIVE: CASE EVENT DATE: 200409
